FAERS Safety Report 11928904 (Version 1)
Quarter: 2016Q1

REPORT INFORMATION
  Report Type: Spontaneous
  Country: FR (occurrence: FR)
  Receive Date: 20160119
  Receipt Date: 20160119
  Transmission Date: 20160526
  Serious: Yes (Other)
  Sender: FDA-Public Use
  Company Number: FR-AMGEN-FRASP2016003203

PATIENT
  Age: 82 Year
  Sex: Female

DRUGS (4)
  1. HALAVEN [Concomitant]
     Active Substance: ERIBULIN MESYLATE
     Dosage: UNK
     Route: 042
     Dates: start: 20150928, end: 20151022
  2. ERIBULIN [Concomitant]
     Active Substance: ERIBULIN
     Dosage: UNK
     Dates: start: 20150928
  3. XGEVA [Suspect]
     Active Substance: DENOSUMAB
     Indication: METASTASES TO BONE
     Dosage: UNK
     Route: 042
     Dates: start: 201404, end: 201504
  4. CAELYX [Concomitant]
     Active Substance: DOXORUBICIN HYDROCHLORIDE
     Dosage: UNK
     Route: 042
     Dates: start: 20150312, end: 201508

REACTIONS (2)
  - Incorrect route of drug administration [Unknown]
  - Osteonecrosis of jaw [Not Recovered/Not Resolved]

NARRATIVE: CASE EVENT DATE: 20151022
